FAERS Safety Report 22387928 (Version 1)
Quarter: 2023Q2

REPORT INFORMATION
  Report Type: Spontaneous
  Country: US (occurrence: US)
  Receive Date: 20230531
  Receipt Date: 20230531
  Transmission Date: 20230722
  Serious: Yes (Other)
  Sender: FDA-Public Use
  Company Number: US-STRIDES ARCOLAB LIMITED-2023SP004686

PATIENT
  Age: 67 Year
  Sex: Female

DRUGS (4)
  1. PREDNISOLONE [Suspect]
     Active Substance: PREDNISOLONE
     Indication: Thrombocytopenia
     Dosage: 30 MILLIGRAM PER DAY, TAPERED OVER 3 MONTHS
     Route: 065
  2. POMALIDOMIDE [Suspect]
     Active Substance: POMALIDOMIDE
     Indication: Thrombocytopenia
     Dosage: 0.5 MILLIGRAM PER DAY
     Route: 065
  3. DANAZOL [Suspect]
     Active Substance: DANAZOL
     Indication: Thrombocytopenia
     Dosage: 200 MILLIGRAM PER DAY
     Route: 065
  4. DANAZOL [Suspect]
     Active Substance: DANAZOL
     Dosage: 200 MILLIGRAM, UP TITRATED TO 200 MG 3 TIMES DAILY (TID)
     Route: 065

REACTIONS (1)
  - Therapy non-responder [Unknown]
